FAERS Safety Report 10204188 (Version 3)
Quarter: 2019Q3

REPORT INFORMATION
  Report Type: Report from Study
  Country: BR (occurrence: BR)
  Receive Date: 20140529
  Receipt Date: 20190807
  Transmission Date: 20191004
  Serious: Yes (Other)
  Sender: FDA-Public Use
  Company Number: BR-SA-2014SA066311

PATIENT
  Age: 31 Year
  Sex: Male
  Weight: 66 kg

DRUGS (2)
  1. AGALSIDASE BETA [Suspect]
     Active Substance: AGALSIDASE BETA
     Indication: FABRY^S DISEASE
     Dosage: 2 (UNITS NOT PROVIDED), Q15D
     Route: 041
     Dates: start: 2014
  2. AGALSIDASE BETA [Suspect]
     Active Substance: AGALSIDASE BETA
     Dosage: 2 (UNITS NOT PROVIDED), Q15D
     Route: 041
     Dates: start: 20140401

REACTIONS (9)
  - Muscle spasms [Unknown]
  - Abdominal pain upper [Unknown]
  - Unevaluable event [Unknown]
  - Headache [Recovered/Resolved]
  - Hypoaesthesia [Unknown]
  - Blindness transient [Recovered/Resolved]
  - Oral disorder [Recovered/Resolved]
  - Product use issue [Not Recovered/Not Resolved]
  - Seizure [Unknown]

NARRATIVE: CASE EVENT DATE: 201402
